FAERS Safety Report 13630543 (Version 1)
Quarter: 2017Q2

REPORT INFORMATION
  Report Type: Spontaneous
  Country: US (occurrence: US)
  Receive Date: 20170531
  Receipt Date: 20170531
  Transmission Date: 20170830
  Serious: No
  Sender: FDA-Public Use
  Company Number: US-ASTELLAS-1310298

PATIENT
  Sex: Female

DRUGS (11)
  1. BENZONATATE. [Concomitant]
     Active Substance: BENZONATATE
  2. ZOMETA [Concomitant]
     Active Substance: ZOLEDRONIC ACID
  3. PENTAMIDINE [Concomitant]
     Active Substance: PENTAMIDINE
  4. TARCEVA [Suspect]
     Active Substance: ERLOTINIB HYDROCHLORIDE
     Route: 048
  5. CLOVE OIL [Concomitant]
  6. TARCEVA [Suspect]
     Active Substance: ERLOTINIB HYDROCHLORIDE
     Indication: LUNG NEOPLASM MALIGNANT
     Route: 048
     Dates: start: 20131031
  7. VITAMIN D3 [Concomitant]
     Active Substance: CHOLECALCIFEROL
  8. KRILL OIL [Concomitant]
     Active Substance: DIETARY SUPPLEMENT
  9. MICARDIS [Concomitant]
     Active Substance: TELMISARTAN
     Route: 065
  10. SINGULAIR [Concomitant]
     Active Substance: MONTELUKAST SODIUM
     Route: 065
  11. ALLEGRA [Concomitant]
     Active Substance: FEXOFENADINE HYDROCHLORIDE
     Route: 065

REACTIONS (11)
  - Alopecia [Unknown]
  - Rhinorrhoea [Not Recovered/Not Resolved]
  - Cough [Unknown]
  - Nasal discomfort [Unknown]
  - Cancer pain [Not Recovered/Not Resolved]
  - Nasal dryness [Not Recovered/Not Resolved]
  - Diarrhoea [Unknown]
  - Rash [Not Recovered/Not Resolved]
  - Stomatitis [Unknown]
  - Gastroenteritis viral [Unknown]
  - Epistaxis [Not Recovered/Not Resolved]
